FAERS Safety Report 10272113 (Version 5)
Quarter: 2014Q3

REPORT INFORMATION
  Report Type: Report from Study
  Country: CA (occurrence: CA)
  Receive Date: 20140702
  Receipt Date: 20140718
  Transmission Date: 20150326
  Serious: Yes (Hospitalization)
  Sender: FDA-Public Use
  Company Number: CA-ROCHE-1425918

PATIENT
  Age: 76 Year
  Sex: Female
  Weight: 63.9 kg

DRUGS (43)
  1. SYNTHROID [Concomitant]
     Active Substance: LEVOTHYROXINE SODIUM
     Route: 048
     Dates: start: 20140611
  2. SEPTRA DS [Concomitant]
     Active Substance: SULFAMETHOXAZOLE\TRIMETHOPRIM
     Dosage: TWICE A DAY ON MON, WED, FRI
     Route: 048
     Dates: start: 20140618
  3. MAGNESIUM OXIDE. [Concomitant]
     Active Substance: MAGNESIUM OXIDE
     Route: 048
     Dates: start: 20140623
  4. OBINUTUZUMAB [Suspect]
     Active Substance: OBINUTUZUMAB
     Indication: CHRONIC LYMPHOCYTIC LEUKAEMIA
     Dosage: LAST DOSE PRIOR TO SAE: 20/JUN/2014, 1000 MG IV ON DAYS 1/2 (SPLIT DOSE), 8 AND 15 OF CYCLE 1, AND O
     Route: 042
     Dates: start: 20140619
  5. OBINUTUZUMAB [Suspect]
     Active Substance: OBINUTUZUMAB
     Route: 042
     Dates: start: 20140709
  6. GCSF OR GMCSF [Concomitant]
     Route: 058
     Dates: start: 20140622, end: 20140628
  7. PRBC [Concomitant]
     Route: 042
     Dates: start: 20140622, end: 20140622
  8. ATIVAN [Concomitant]
     Active Substance: LORAZEPAM
     Route: 065
     Dates: start: 20140611
  9. HYDROMORPH CONTIN [Concomitant]
     Active Substance: HYDROMORPHONE
     Route: 048
     Dates: start: 20140611
  10. ZOFRAN [Concomitant]
     Active Substance: ONDANSETRON HYDROCHLORIDE
     Route: 048
     Dates: start: 20140619
  11. ATIVAN [Concomitant]
     Active Substance: LORAZEPAM
     Route: 048
     Dates: start: 20140626
  12. ASA [Concomitant]
     Active Substance: ASPIRIN
     Dosage: DAILY IF PLATELETS ABOVE 50.
     Route: 048
     Dates: start: 20140611
  13. VENTOLIN [Concomitant]
     Active Substance: ALBUTEROL SULFATE
     Dosage: INTRANASAL?DOSE: 2 PUFFS
     Route: 065
     Dates: start: 20140624
  14. DEXAMETHASONE. [Concomitant]
     Active Substance: DEXAMETHASONE
     Route: 042
     Dates: start: 20140619, end: 20140620
  15. LACTULOSE. [Concomitant]
     Active Substance: LACTULOSE
     Dosage: DOSE: 30 OTHER CC?EVERY NIGHT UNTIL BM: THEN PRN
     Route: 048
     Dates: start: 20140611
  16. SENOKOT-S [Concomitant]
     Active Substance: DOCUSATE SODIUM\SENNOSIDES
     Dosage: TWICE DAILY UNTIL BM; THEN PRN?DOSE: 2 OTHER PILLS
     Route: 048
     Dates: start: 20140611
  17. MONTELUKAST [Concomitant]
     Active Substance: MONTELUKAST SODIUM
     Route: 048
     Dates: start: 20140616, end: 20140620
  18. VENTOLIN [Concomitant]
     Active Substance: ALBUTEROL SULFATE
     Dosage: INTRANASAL
     Route: 065
     Dates: start: 20140611, end: 20140619
  19. K-DUR [Concomitant]
     Active Substance: POTASSIUM CHLORIDE
     Route: 048
     Dates: start: 20140623, end: 20140623
  20. ZANTAC [Concomitant]
     Active Substance: RANITIDINE HYDROCHLORIDE
     Route: 042
     Dates: start: 20140619, end: 20140619
  21. BENDAMUSTINE [Suspect]
     Active Substance: BENDAMUSTINE
     Indication: CHRONIC LYMPHOCYTIC LEUKAEMIA
     Route: 042
     Dates: start: 20140709
  22. CETIRIZINE [Concomitant]
     Active Substance: CETIRIZINE HYDROCHLORIDE
     Route: 048
     Dates: start: 20140616, end: 20140620
  23. BENADRYL [Concomitant]
     Active Substance: DIPHENHYDRAMINE HYDROCHLORIDE
     Route: 042
     Dates: start: 20140619, end: 20140619
  24. PRBC [Concomitant]
     Route: 042
     Dates: start: 20140624, end: 20140624
  25. VENTOLIN [Concomitant]
     Active Substance: ALBUTEROL SULFATE
     Dosage: INTRANASAL
     Route: 065
     Dates: end: 20140624
  26. TYLENOL WITH CODEINE [Concomitant]
     Active Substance: ACETAMINOPHEN\CODEINE PHOSPHATE
     Route: 048
     Dates: start: 20140611, end: 20140611
  27. TYLENOL WITH CODEINE [Concomitant]
     Active Substance: ACETAMINOPHEN\CODEINE PHOSPHATE
     Dosage: 30 MINUTES PRIOR GA101
     Route: 048
     Dates: start: 20140619, end: 20140619
  28. BENADRYL [Concomitant]
     Active Substance: DIPHENHYDRAMINE HYDROCHLORIDE
     Dosage: 30 MINUTES PRIOR GA101
     Route: 042
     Dates: start: 20140619
  29. DILAUDID [Concomitant]
     Active Substance: HYDROMORPHONE HYDROCHLORIDE
     Route: 048
     Dates: start: 20140611
  30. PRBC [Concomitant]
     Route: 042
     Dates: start: 20140620, end: 20140620
  31. PRBC [Concomitant]
     Route: 042
     Dates: start: 20140623, end: 20140623
  32. ACYCLOVIR. [Concomitant]
     Active Substance: ACYCLOVIR
     Route: 065
     Dates: start: 20140618
  33. ATIVAN [Concomitant]
     Active Substance: LORAZEPAM
     Route: 048
     Dates: start: 20140619, end: 20140619
  34. POLYETHYLENE GLYCOL [Concomitant]
     Active Substance: POLYETHYLENE GLYCOLS
     Route: 048
     Dates: start: 20140611
  35. RASBURICASE [Concomitant]
     Active Substance: RASBURICASE
     Route: 042
     Dates: start: 20140619, end: 20140619
  36. SPIRIVA [Concomitant]
     Active Substance: TIOTROPIUM BROMIDE MONOHYDRATE
     Dosage: INTRANASAL
     Route: 065
     Dates: start: 20140624
  37. RABEPRAZOLE [Concomitant]
     Active Substance: RABEPRAZOLE
     Route: 048
     Dates: start: 20140709
  38. ALLOPURINOL. [Concomitant]
     Active Substance: ALLOPURINOL
     Route: 048
     Dates: start: 20140617, end: 20140623
  39. ACYCLOVIR. [Concomitant]
     Active Substance: ACYCLOVIR
     Route: 048
     Dates: start: 20140618
  40. SYMBICORT [Concomitant]
     Active Substance: BUDESONIDE\FORMOTEROL FUMARATE DIHYDRATE
     Dosage: INTRANASAL
     Route: 065
     Dates: start: 20140624
  41. RANITIDINE [Concomitant]
     Active Substance: RANITIDINE\RANITIDINE HYDROCHLORIDE
     Route: 048
     Dates: start: 20140616, end: 20140620
  42. FLOVENT [Concomitant]
     Active Substance: FLUTICASONE PROPIONATE
     Dosage: INTRANASAL
     Route: 065
     Dates: start: 20140611, end: 20140619
  43. TUMS [Concomitant]
     Active Substance: CALCIUM CARBONATE
     Route: 048
     Dates: start: 20140621, end: 20140701

REACTIONS (2)
  - Pulmonary oedema [Recovered/Resolved]
  - Atypical pneumonia [Recovered/Resolved]

NARRATIVE: CASE EVENT DATE: 20140622
